FAERS Safety Report 6762922-6 (Version None)
Quarter: 2010Q2

REPORT INFORMATION
  Report Type: 
  Country: None (occurrence: None)
  Receive Date: 20100609
  Receipt Date: 20100528
  Transmission Date: 20101027
  Serious: Yes (Hospitalization)
  Sender: FDA-Public Use
  Company Number: ES-ELI_LILLY_AND_COMPANY-ES201005007893

PATIENT
  Sex: Female
  Weight: 71 kg

DRUGS (10)
  1. FORTEO [Suspect]
     Indication: OSTEOPOROSIS
     Dosage: 20 UG, DAILY (1/D)
     Route: 058
     Dates: start: 20100105
  2. LEVOTHROID [Concomitant]
     Indication: HYPOTHYROIDISM
     Dosage: 100 UG, DAILY (1/D)
     Route: 048
  3. FUROSEMIDE [Concomitant]
     Indication: HYPERTENSION
     Dosage: 40 MG, DAILY (1/D)
     Route: 048
  4. BOI K [Concomitant]
     Dosage: 50 MG, DAILY (1/D)
     Route: 048
  5. NUCLOSINA [Concomitant]
     Indication: PROPHYLAXIS
     Dosage: 20 MG, DAILY (1/D)
     Route: 048
  6. PLAVIX [Concomitant]
     Indication: CARDIAC DISORDER
     Dosage: 75 MG, DAILY (1/D)
     Route: 048
  7. DAFLON [Concomitant]
     Indication: ANGIOPATHY
     Dosage: 500 MG, DAILY (1/D)
     Route: 048
  8. LISINOPRIL [Concomitant]
     Indication: HYPERTENSION
     Dosage: 5 MG, DAILY (1/D)
     Route: 048
  9. PARACETAMOL [Concomitant]
     Indication: PAIN
     Dosage: 1 G, 3/D
     Route: 048
  10. FENTANYL [Concomitant]
     Indication: PAIN
     Dosage: UNK, OTHER
     Route: 061

REACTIONS (1)
  - PULMONARY OEDEMA [None]
